FAERS Safety Report 9353982 (Version 1)
Quarter: 2013Q2

REPORT INFORMATION
  Report Type: Spontaneous
  Country: JP (occurrence: JP)
  Receive Date: 20130618
  Receipt Date: 20130618
  Transmission Date: 20140414
  Serious: Yes (Hospitalization, Other)
  Sender: FDA-Public Use
  Company Number: JP-ACTAVIS-2013-10563

PATIENT
  Age: 61 Year
  Sex: Male

DRUGS (1)
  1. CARBAMAZEPINE (UNKNOWN) [Suspect]
     Indication: CONVULSION
     Dosage: UNK
     Route: 065

REACTIONS (2)
  - Diffuse panbronchiolitis [Recovered/Resolved]
  - Hypogammaglobulinaemia [Recovering/Resolving]
